FAERS Safety Report 24753402 (Version 1)
Quarter: 2024Q4

REPORT INFORMATION
  Report Type: Spontaneous
  Country: RO (occurrence: RO)
  Receive Date: 20241219
  Receipt Date: 20241219
  Transmission Date: 20250115
  Serious: Yes (Other)
  Sender: BRISTOL-MYERS SQUIBB COMPANY
  Company Number: RO-BRISTOL-MYERS SQUIBB COMPANY-2024-193582

PATIENT
  Age: 63 Year
  Sex: Female

DRUGS (19)
  1. NIVOLUMAB [Suspect]
     Active Substance: NIVOLUMAB
     Indication: Non-small cell lung cancer
     Dosage: CYCLE 1
     Dates: start: 20240521
  2. NIVOLUMAB [Suspect]
     Active Substance: NIVOLUMAB
     Dosage: CYCLE 2
     Dates: start: 20240620
  3. NIVOLUMAB [Suspect]
     Active Substance: NIVOLUMAB
     Dosage: CYCLE 3
     Dates: start: 20240731
  4. NIVOLUMAB [Suspect]
     Active Substance: NIVOLUMAB
     Dosage: CYCLE 4
     Dates: start: 20240822
  5. NIVOLUMAB [Suspect]
     Active Substance: NIVOLUMAB
     Dosage: CYCLE 5
     Dates: start: 20240912
  6. NIVOLUMAB [Suspect]
     Active Substance: NIVOLUMAB
     Dosage: CYCLE 6
     Dates: start: 20241003
  7. NIVOLUMAB [Suspect]
     Active Substance: NIVOLUMAB
     Dosage: CYCLE 7
     Dates: start: 20241024
  8. NIVOLUMAB [Suspect]
     Active Substance: NIVOLUMAB
     Dosage: CYCLE 8
     Dates: start: 20241114
  9. NIVOLUMAB [Suspect]
     Active Substance: NIVOLUMAB
     Dosage: CYCLE 9
     Dates: start: 20241205
  10. IPILIMUMAB [Suspect]
     Active Substance: IPILIMUMAB
     Indication: Non-small cell lung cancer
     Dosage: (IPI 1MG/KGC=100MG Q6WKS)
     Dates: start: 20240521
  11. IPILIMUMAB [Suspect]
     Active Substance: IPILIMUMAB
     Dosage: (IPI 1MG/KGC=100MG Q6WKS)
     Dates: start: 20240731
  12. IPILIMUMAB [Suspect]
     Active Substance: IPILIMUMAB
     Dosage: (IPI 1MG/KGC=100MG Q6WKS)
     Dates: start: 20240912
  13. IPILIMUMAB [Suspect]
     Active Substance: IPILIMUMAB
     Dosage: (IPI 1MG/KGC=100MG Q6WKS)
     Dates: start: 20241024
  14. IPILIMUMAB [Suspect]
     Active Substance: IPILIMUMAB
     Dosage: (IPI 1MG/KGC=100MG Q6WKS)
     Dates: start: 20241205
  15. PEMETREXED [Concomitant]
     Active Substance: PEMETREXED
     Indication: Non-small cell lung cancer
     Dosage: 2 CYCLE
     Dates: start: 20240521
  16. PEMETREXED [Concomitant]
     Active Substance: PEMETREXED
     Dosage: 2 CYCLE
     Dates: start: 20240620
  17. CARBOPLATIN [Concomitant]
     Active Substance: CARBOPLATIN
     Indication: Non-small cell lung cancer
     Dosage: 2 CYCLES
     Dates: start: 20240521
  18. CARBOPLATIN [Concomitant]
     Active Substance: CARBOPLATIN
     Dosage: 2 CYCLES
     Dates: start: 20240620
  19. FILGRASTIM [Concomitant]
     Active Substance: FILGRASTIM
     Indication: Non-small cell lung cancer
     Dosage: 30MUI, 1 FL./DAY SUBCUTANEOUS X 5 DAYS
     Route: 058
     Dates: start: 20240521

REACTIONS (5)
  - Neutropenia [Unknown]
  - Symmetrical drug-related intertriginous and flexural exanthema [Unknown]
  - Aphthous ulcer [Unknown]
  - Epistaxis [Recovering/Resolving]
  - Clostridium difficile infection [Recovering/Resolving]

NARRATIVE: CASE EVENT DATE: 20240528
